FAERS Safety Report 15220581 (Version 2)
Quarter: 2018Q3

REPORT INFORMATION
  Report Type: Report from Study
  Country: None (occurrence: US)
  Receive Date: 20180731
  Receipt Date: 20180802
  Transmission Date: 20181010
  Serious: Yes (Other)
  Sender: FDA-Public Use
  Company Number: US-ABBVIE-18K-163-2391269-00

PATIENT
  Sex: Female

DRUGS (3)
  1. HUMIRA [Suspect]
     Active Substance: ADALIMUMAB
     Route: 058
     Dates: start: 201804, end: 201804
  2. HUMIRA [Suspect]
     Active Substance: ADALIMUMAB
     Indication: PSORIASIS
     Route: 058
  3. HUMIRA [Suspect]
     Active Substance: ADALIMUMAB
     Dosage: DAY 8
     Route: 058
     Dates: start: 201805

REACTIONS (14)
  - Skin burning sensation [Unknown]
  - Systemic lupus erythematosus [Unknown]
  - Frustration tolerance decreased [Unknown]
  - Psoriasis [Recovering/Resolving]
  - General physical condition abnormal [Recovering/Resolving]
  - Musculoskeletal pain [Not Recovered/Not Resolved]
  - Helplessness [Not Recovered/Not Resolved]
  - Anger [Recovering/Resolving]
  - Pruritus [Recovering/Resolving]
  - Emotional distress [Recovering/Resolving]
  - Skin irritation [Recovering/Resolving]
  - Impaired quality of life [Recovering/Resolving]
  - Headache [Unknown]
  - Pain of skin [Recovering/Resolving]

NARRATIVE: CASE EVENT DATE: 2017
